FAERS Safety Report 6190834-8 (Version None)
Quarter: 2009Q2

REPORT INFORMATION
  Report Type: 
  Country: None (occurrence: None)
  Receive Date: 20090514
  Receipt Date: 20090512
  Transmission Date: 20091009
  Serious: Yes (Death)
  Sender: FDA-Public Use
  Company Number: PHEH2009US04225

PATIENT
  Sex: Male

DRUGS (2)
  1. ZOMETA [Suspect]
     Indication: BONE LESION
     Dosage: 4 MG IV Q 28 DAYS
     Dates: start: 20090201
  2. LORTAB [Concomitant]
     Indication: PAIN
     Dosage: 5/500 MG PRN
     Dates: start: 20081108

REACTIONS (2)
  - DEATH [None]
  - UNRESPONSIVE TO STIMULI [None]
